FAERS Safety Report 7528451-7 (Version None)
Quarter: 2011Q2

REPORT INFORMATION
  Report Type: 
  Country: None (occurrence: None)
  Receive Date: 20110607
  Receipt Date: 20110525
  Transmission Date: 20111010
  Serious: Yes (Other)
  Sender: FDA-Public Use
  Company Number: US-ELI_LILLY_AND_COMPANY-US201003008661

PATIENT
  Sex: Female

DRUGS (30)
  1. CALCIUM PLUS D3 [Concomitant]
     Dosage: 2 D/F, DAILY (1/D)
  2. ZANTAC [Concomitant]
     Dosage: 300 MG, 2/D
  3. AMLODIPINE [Concomitant]
     Dosage: 5 MG, DAILY (1/D)
  4. ALPRAZOLAM [Concomitant]
     Dosage: 0.25 MG, AS NEEDED
  5. PROZAC [Concomitant]
  6. VITAMIN D [Concomitant]
  7. PREMARIN [Concomitant]
  8. VITAMIN E /001105/ [Concomitant]
     Dosage: 1 D/F, UNK
  9. KLOR-CON [Concomitant]
     Dosage: 10 MG, DAILY (1/D)
  10. LASIX [Concomitant]
  11. NEFAZODONE [Concomitant]
     Dosage: 100 MG, 2/D
  12. NITROGLYCERIN [Concomitant]
     Dosage: 0.4 MG, AS NEEDED
  13. FORTEO [Suspect]
     Indication: OSTEOPOROSIS POSTMENOPAUSAL
     Dosage: 20 UG, DAILY (1/D)
     Route: 058
  14. ALBUTEROL SULFATE AUTOHALER [Concomitant]
     Dosage: UNK, AS NEEDED
  15. NORVASC [Concomitant]
  16. FORTEO [Suspect]
     Dosage: 20 UG, DAILY (1/D)
     Route: 058
  17. FORTEO [Suspect]
     Dosage: 20 UG, QD
     Route: 058
  18. SPIRIVA [Concomitant]
     Dosage: 2 D/F, EACH MORNING
     Route: 045
  19. SERZONE [Concomitant]
  20. METHIMAZOLE [Concomitant]
  21. ASPIRIN [Concomitant]
     Dosage: 81 MG, DAILY (1/D)
  22. OXYGEN [Concomitant]
     Dosage: EVERY NIGHT AND DURING THE DAY AS NEEDED
     Route: 045
  23. FORTEO [Suspect]
     Dosage: 20 UG, DAILY (1/D)
     Route: 058
  24. FORTEO [Suspect]
     Dosage: 20 UG, QD
     Route: 058
  25. MULTI-VITAMIN [Concomitant]
     Dosage: UNK, DAILY (1/D)
  26. CRESTOR [Concomitant]
     Dosage: 30 MG, DAILY (1/D)
  27. FLUOXETINE HCL [Concomitant]
     Dosage: 40 MG, DAILY (1/D)
  28. FUROSEMIDE [Concomitant]
     Dosage: 40 MG, DAILY (1/D)
  29. SYMBICORT [Concomitant]
  30. DIMETINDENE [Concomitant]

REACTIONS (12)
  - ALOPECIA [None]
  - CONTUSION [None]
  - ARTHRALGIA [None]
  - DIARRHOEA [None]
  - HEAD INJURY [None]
  - SURGERY [None]
  - THYROID DISORDER [None]
  - DARK CIRCLES UNDER EYES [None]
  - SWELLING FACE [None]
  - FATIGUE [None]
  - BACK PAIN [None]
  - FALL [None]
